FAERS Safety Report 14023564 (Version 1)
Quarter: 2017Q3

REPORT INFORMATION
  Report Type: Spontaneous
  Country: CN (occurrence: CN)
  Receive Date: 20170929
  Receipt Date: 20170929
  Transmission Date: 20171128
  Serious: Yes (Other)
  Sender: FDA-Public Use
  Company Number: CN-BAYER-2017-180576

PATIENT
  Age: 66 Year
  Sex: Male
  Weight: 65 kg

DRUGS (1)
  1. STIVARGA [Suspect]
     Active Substance: REGORAFENIB
     Indication: COLORECTAL CANCER METASTATIC
     Dosage: 40 MG, BID
     Route: 048
     Dates: start: 201509

REACTIONS (3)
  - Hepatic neoplasm [None]
  - Pneumonitis [None]
  - Pulmonary mass [None]

NARRATIVE: CASE EVENT DATE: 201512
